FAERS Safety Report 23896803 (Version 1)
Quarter: 2024Q2

REPORT INFORMATION
  Report Type: Spontaneous
  Country: US (occurrence: US)
  Receive Date: 20240524
  Receipt Date: 20240524
  Transmission Date: 20240716
  Serious: No
  Sender: FDA-Public Use
  Company Number: US-FreseniusKabi-FK202407903

PATIENT
  Age: 12 Year
  Sex: Female

DRUGS (4)
  1. SMOFLIPID [Suspect]
     Active Substance: FISH OIL\MEDIUM-CHAIN TRIGLYCERIDES\OLIVE OIL\SOYBEAN OIL
     Indication: Nutritional supplementation
     Dosage: ROUTE OF ADMIN: THROUGH CENTRAL LINE VIA Y-SITE WITH TPN.?DOSE: ASKED BUT UNKNOWN ?FREQUENCY: DAILY
     Route: 042
     Dates: start: 2018
  2. SMOFLIPID [Suspect]
     Active Substance: FISH OIL\MEDIUM-CHAIN TRIGLYCERIDES\OLIVE OIL\SOYBEAN OIL
     Dosage: FORM OF ADMIN: INJECTABLE EMULSION?ROUTE OF ADMIN: IV THROUGH CENTRAL LINE VIA Y-SITE.?FREQUENCY: OV
     Route: 042
     Dates: start: 2024
  3. DIMETAPP COLD AND COUGH [Suspect]
     Active Substance: BROMPHENIRAMINE MALEATE\DEXTROMETHORPHAN HYDROBROMIDE\PHENYLEPHRINE HYDROCHLORIDE
     Indication: Seasonal allergy
     Dosage: DOSE: ASKED BUT UNKNOWN?FREQUENCY: PRN?FORM OF ADMIN: SUSPENSION
     Route: 048
     Dates: start: 2024, end: 202405
  4. FAMOTIDINE [Concomitant]
     Active Substance: FAMOTIDINE
     Indication: Product used for unknown indication
     Dosage: FORM OF ADMIN: SUSPENSION?FREQUENCY: PRN

REACTIONS (7)
  - Incorrect product administration duration [Not Recovered/Not Resolved]
  - Incorrect drug administration rate [Not Recovered/Not Resolved]
  - Accidental overdose [Not Recovered/Not Resolved]
  - Incorrect dose administered by device [Not Recovered/Not Resolved]
  - Blood bilirubin increased [Not Recovered/Not Resolved]
  - Condition aggravated [Not Recovered/Not Resolved]
  - Bone density decreased [Not Recovered/Not Resolved]

NARRATIVE: CASE EVENT DATE: 20240101
